FAERS Safety Report 11235931 (Version 3)
Quarter: 2015Q3

REPORT INFORMATION
  Report Type: Report from Study
  Country: IT (occurrence: IT)
  Receive Date: 20150702
  Receipt Date: 20150728
  Transmission Date: 20151125
  Serious: Yes (Death, Hospitalization)
  Sender: FDA-Public Use
  Company Number: PHHY2015IT078502

PATIENT
  Age: 48 Year
  Sex: Male

DRUGS (3)
  1. GILENYA [Suspect]
     Active Substance: FINGOLIMOD HYDROCHLORIDE
     Indication: MULTIPLE SCLEROSIS
     Dosage: 0.5 MG, QD
     Route: 048
     Dates: start: 20130130
  2. DEPAKIN CHRONO                     /01294701/ [Concomitant]
     Active Substance: VALPROIC ACID
     Indication: EPILEPSY
     Dosage: 1 G, QD
     Route: 048
     Dates: start: 20030101
  3. LAMICTAL [Concomitant]
     Active Substance: LAMOTRIGINE
     Indication: EPILEPSY
     Dosage: 200 MG, QD
     Route: 065
     Dates: start: 20030101

REACTIONS (6)
  - Lung infection [Fatal]
  - Abasia [Unknown]
  - Lung disorder [Fatal]
  - Decubitus ulcer [Unknown]
  - Expanded disability status scale score increased [Unknown]
  - Septic shock [Fatal]

NARRATIVE: CASE EVENT DATE: 20150413
